FAERS Safety Report 8011260-2 (Version None)
Quarter: 2011Q4

REPORT INFORMATION
  Report Type: 
  Country: None (occurrence: None)
  Receive Date: 20111227
  Receipt Date: 20111227
  Transmission Date: 20120403
  Serious: Yes (Other)
  Sender: FDA-Public Use
  Company Number: None

PATIENT
  Age: 53 Year
  Sex: Female
  Weight: 72.574 kg

DRUGS (1)
  1. LEVOFLOXACIN [Suspect]
     Indication: INFECTION
     Dosage: 750MG
     Dates: start: 20110720, end: 20110803

REACTIONS (7)
  - ARTHRALGIA [None]
  - SYNOVIAL CYST [None]
  - TENDON DISORDER [None]
  - PARAESTHESIA [None]
  - MOVEMENT DISORDER [None]
  - HYPOAESTHESIA [None]
  - PAIN IN EXTREMITY [None]
